FAERS Safety Report 22630769 (Version 1)
Quarter: 2023Q2

REPORT INFORMATION
  Report Type: Spontaneous
  Country: US (occurrence: None)
  Receive Date: 20230620
  Receipt Date: 20230620
  Transmission Date: 20230721
  Serious: Yes (Other)
  Sender: FDA-Public Use
  Company Number: None

PATIENT
  Age: 65 Year
  Sex: Male

DRUGS (1)
  1. HUMIRA [Suspect]
     Active Substance: ADALIMUMAB
     Dosage: OTHER FREQUENCY : Q 14DAY;?
     Route: 058
     Dates: start: 20230214

REACTIONS (7)
  - Fatigue [None]
  - Hypotension [None]
  - Headache [None]
  - Decreased appetite [None]
  - Abdominal discomfort [None]
  - Diarrhoea [None]
  - Epistaxis [None]

NARRATIVE: CASE EVENT DATE: 20230620
